FAERS Safety Report 8557260-5 (Version None)
Quarter: 2012Q3

REPORT INFORMATION
  Report Type: 
  Country: None (occurrence: None)
  Receive Date: 20120801
  Receipt Date: 20120730
  Transmission Date: 20120928
  Serious: No
  Sender: FDA-Public Use
  Company Number: US-BAYER-2012-077099

PATIENT
  Age: 46 Year
  Sex: Female

DRUGS (11)
  1. PRIMIDONE [Concomitant]
     Dosage: 50 MG, UNK
  2. AMITRIPTYLINE HCL [Concomitant]
     Dosage: 150 MG, UNK
  3. IBUPROFEN (ADVIL) [Concomitant]
     Dosage: 200 MG, UNK
  4. MULTI-VITAMINS [Concomitant]
  5. ATENOLOL [Concomitant]
     Dosage: 50 MG, UNK
  6. VITAMIN D [Concomitant]
  7. REQUIP [Concomitant]
     Dosage: 4 MG, UNK
  8. ACIDOPHILUS [Concomitant]
  9. BETASERON [Suspect]
     Dosage: 0.3 MG, QOD
     Route: 058
  10. CALCIUM CARBONATE [Concomitant]
  11. CALCIUM [Concomitant]

REACTIONS (2)
  - PAIN [None]
  - CHILLS [None]
